FAERS Safety Report 9047012 (Version 1)
Quarter: 2013Q1

REPORT INFORMATION
  Report Type: Report from Study
  Country: DE (occurrence: DE)
  Receive Date: 20130204
  Receipt Date: 20130204
  Transmission Date: 20140127
  Serious: Yes (Hospitalization, Other)
  Sender: FDA-Public Use
  Company Number: PHHO2013DE001568

PATIENT
  Age: 4 Year
  Sex: Male
  Weight: 15.8 kg

DRUGS (2)
  1. CGP 57148B [Suspect]
     Indication: ACUTE LYMPHOCYTIC LEUKAEMIA
     Dosage: UNK
     Route: 048
     Dates: end: 20121223
  2. PEGASPARGASE [Suspect]
     Indication: ACUTE LYMPHOCYTIC LEUKAEMIA
     Dosage: UNK
     Dates: end: 20121223

REACTIONS (6)
  - Enterocolitis [Recovered/Resolved]
  - Sialoadenitis [Unknown]
  - Pyrexia [Unknown]
  - Mucosal inflammation [Unknown]
  - Abdominal pain [Unknown]
  - Subileus [Unknown]
